FAERS Safety Report 6621738-1 (Version None)
Quarter: 2010Q1

REPORT INFORMATION
  Report Type: 
  Country: None (occurrence: None)
  Receive Date: 20100309
  Receipt Date: 20100225
  Transmission Date: 20100710
  Serious: Yes (Life-Threatening)
  Sender: FDA-Public Use
  Company Number: DK-WYE-G05649110

PATIENT
  Sex: Female

DRUGS (2)
  1. EFFEXOR [Suspect]
     Indication: DEPRESSION
     Route: 048
  2. EFFEXOR [Suspect]
     Route: 048

REACTIONS (2)
  - DRUG EXPOSURE DURING PREGNANCY [None]
  - ECLAMPSIA [None]
